FAERS Safety Report 20170391 (Version 1)
Quarter: 2021Q4

REPORT INFORMATION
  Report Type: Spontaneous
  Country: US (occurrence: US)
  Receive Date: 20211210
  Receipt Date: 20211210
  Transmission Date: 20220304
  Serious: No
  Sender: FDA-Public Use
  Company Number: US-SANOFI-00882857

PATIENT
  Age: 70 Year
  Sex: Male

DRUGS (4)
  1. DUPIXENT [Suspect]
     Active Substance: DUPILUMAB
     Indication: Nasal polyps
     Dosage: 300 MG
     Dates: start: 20211122
  2. MONTELUKAST [Concomitant]
     Active Substance: MONTELUKAST SODIUM
  3. IPRATROPIUM [Concomitant]
     Active Substance: IPRATROPIUM
  4. AZELASTINE [Concomitant]
     Active Substance: AZELASTINE

REACTIONS (3)
  - Injection site erythema [Unknown]
  - Injection site swelling [Unknown]
  - Product use in unapproved indication [Unknown]

NARRATIVE: CASE EVENT DATE: 20211122
